FAERS Safety Report 18255568 (Version 2)
Quarter: 2020Q4

REPORT INFORMATION
  Report Type: Spontaneous
  Country: DE (occurrence: DE)
  Receive Date: 20200910
  Receipt Date: 20201009
  Transmission Date: 20210113
  Serious: Yes (Death, Hospitalization, Disabling)
  Sender: FDA-Public Use
  Company Number: NVSC2020DE040215

PATIENT
  Age: 65 Year
  Sex: Female
  Weight: 52 kg

DRUGS (2)
  1. DOCETAXEL. [Suspect]
     Active Substance: DOCETAXEL
     Indication: LUNG ADENOCARCINOMA
     Dosage: 1 DF, QD (LIQUID DAILY DOSE: 75 MG/M2 BODY SURFACE AREA)
     Route: 042
     Dates: start: 20190918, end: 20191009
  2. VARGATEF [Suspect]
     Active Substance: NINTEDANIB
     Indication: LUNG ADENOCARCINOMA
     Dosage: 200 MG, Q12H (200 MG BID)
     Route: 065
     Dates: start: 20190919, end: 20191010

REACTIONS (4)
  - Platelet count decreased [Not Recovered/Not Resolved]
  - Diarrhoea [Recovered/Resolved]
  - Pneumonia [Fatal]
  - Oropharyngeal pain [Not Recovered/Not Resolved]

NARRATIVE: CASE EVENT DATE: 20191009
